FAERS Safety Report 9889648 (Version 1)
Quarter: 2014Q1

REPORT INFORMATION
  Report Type: Report from Study
  Country: ES (occurrence: ES)
  Receive Date: 20140211
  Receipt Date: 20140211
  Transmission Date: 20141002
  Serious: Yes (Other)
  Sender: FDA-Public Use
  Company Number: ES-MYLANLABS-2014S1002435

PATIENT
  Age: 61 Year
  Sex: Male

DRUGS (2)
  1. SITAGLIPTIN [Suspect]
     Route: 065
  2. PRAVASTATIN [Suspect]
     Route: 065

REACTIONS (3)
  - Arthralgia [Unknown]
  - Joint stiffness [Unknown]
  - Myalgia [Unknown]
